FAERS Safety Report 4824129-9 (Version None)
Quarter: 2005Q4

REPORT INFORMATION
  Report Type: 
  Country: None (occurrence: None)
  Receive Date: 20051108
  Receipt Date: 20051102
  Transmission Date: 20060501
  Serious: Yes (Hospitalization)
  Sender: FDA-Public Use
  Company Number: USA0510111635

PATIENT
  Age: 69 Year
  Sex: Female

DRUGS (7)
  1. ZYPREXA [Suspect]
     Indication: AGITATION
     Dosage: 2.5 MG/3 DAY
     Dates: start: 20040101
  2. ARICEPT [Concomitant]
  3. VALPROIC ACID [Concomitant]
  4. BENZOTROPINE (BENZATROPINE MESILATE) [Concomitant]
  5. ACCUPRIL [Concomitant]
  6. SYNTHROID [Concomitant]
  7. NAMENDA [Concomitant]

REACTIONS (2)
  - FALL [None]
  - HIP FRACTURE [None]
